FAERS Safety Report 12713140 (Version 3)
Quarter: 2016Q4

REPORT INFORMATION
  Report Type: Report from Study
  Country: JP (occurrence: JP)
  Receive Date: 20160902
  Receipt Date: 20161117
  Transmission Date: 20170207
  Serious: Yes (Hospitalization)
  Sender: FDA-Public Use
  Company Number: JP-ASTRAZENECA-2016SE92998

PATIENT
  Age: 72 Year
  Sex: Female
  Weight: 39 kg

DRUGS (3)
  1. TAGRISSO [Suspect]
     Active Substance: OSIMERTINIB
     Indication: NON-SMALL CELL LUNG CANCER
     Route: 048
     Dates: start: 20160818
  2. PARIET [Concomitant]
     Active Substance: RABEPRAZOLE SODIUM
     Dosage: 10 MG QD; AFTER EVENING MEAL
     Dates: start: 20160512, end: 20160627
  3. TAGRISSO [Suspect]
     Active Substance: OSIMERTINIB
     Indication: NON-SMALL CELL LUNG CANCER
     Route: 048
     Dates: start: 20160428, end: 20160817

REACTIONS (3)
  - Duodenal ulcer [Recovering/Resolving]
  - Iron deficiency anaemia [Recovering/Resolving]
  - Duodenal stenosis [Recovering/Resolving]

NARRATIVE: CASE EVENT DATE: 20160509
